FAERS Safety Report 5063940-9 (Version None)
Quarter: 2006Q3

REPORT INFORMATION
  Report Type: 
  Country: None (occurrence: None)
  Receive Date: 20060724
  Receipt Date: 20060709
  Transmission Date: 20061208
  Serious: Yes (Other)
  Sender: FDA-Public Use
  Company Number: 2006055247

PATIENT
  Sex: Male

DRUGS (2)
  1. NEURONTIN [Suspect]
     Indication: NEURALGIA
     Dosage: 3200 MG
     Dates: start: 20031219
  2. LYRICA [Suspect]
     Indication: NEURALGIA
     Dosage: 300 MG (1 D)
     Dates: start: 20060406

REACTIONS (5)
  - ABNORMAL BEHAVIOUR [None]
  - DRUG EFFECT DECREASED [None]
  - DRUG INTERACTION [None]
  - MEMORY IMPAIRMENT [None]
  - MOVEMENT DISORDER [None]
